FAERS Safety Report 4490151-8 (Version None)
Quarter: 2004Q4

REPORT INFORMATION
  Report Type: 
  Country: None (occurrence: None)
  Receive Date: 20041027
  Receipt Date: 20041013
  Transmission Date: 20050328
  Serious: Yes (Other)
  Sender: FDA-Public Use
  Company Number: 206209

PATIENT
  Age: 33 Year
  Sex: Female
  Weight: 52.1637 kg

DRUGS (3)
  1. AVONEX [Suspect]
     Indication: MULTIPLE SCLEROSIS
     Dosage: 30 MCG QW IM
     Route: 030
     Dates: start: 20040918
  2. DURAGESIC [Concomitant]
  3. VICODIN [Concomitant]

REACTIONS (3)
  - PAIN EXACERBATED [None]
  - PAIN IN EXTREMITY [None]
  - PYREXIA [None]
